FAERS Safety Report 4627852-4 (Version None)
Quarter: 2005Q2

REPORT INFORMATION
  Report Type: 
  Country: None (occurrence: None)
  Receive Date: 20050401
  Receipt Date: 20050321
  Transmission Date: 20051028
  Serious: Yes (Hospitalization, Other)
  Sender: FDA-Public Use
  Company Number: 2005048119

PATIENT
  Age: 75 Year
  Sex: Male

DRUGS (4)
  1. ALDACTONE [Suspect]
     Indication: ILL-DEFINED DISORDER
     Dosage: (25 MG), ORAL
     Route: 048
     Dates: start: 20041115, end: 20050127
  2. FUROSEMIDE [Suspect]
     Indication: ILL-DEFINED DISORDER
     Dosage: ORAL
     Route: 048
     Dates: end: 20050117
  3. FLUINDIONE (FLUINDIONE) [Suspect]
     Indication: ILL-DEFINED DISORDER
     Dosage: ORAL
     Route: 048
  4. ALLOPURINOL [Suspect]
     Indication: GOUT
     Dosage: ORAL
     Route: 048
     Dates: end: 20050128

REACTIONS (8)
  - ANAEMIA [None]
  - ANTINUCLEAR ANTIBODY POSITIVE [None]
  - ARTHRALGIA [None]
  - CRYOGLOBULINS PRESENT [None]
  - ENDOSCOPY ABNORMAL [None]
  - PURPURA [None]
  - RENAL FAILURE [None]
  - VASCULITIS [None]
